FAERS Safety Report 17067172 (Version 2)
Quarter: 2019Q4

REPORT INFORMATION
  Report Type: Report from Study
  Country: DE (occurrence: DE)
  Receive Date: 20191122
  Receipt Date: 20191213
  Transmission Date: 20200122
  Serious: Yes (Hospitalization, Other)
  Sender: FDA-Public Use
  Company Number: DE-MYLANLABS-2019M1112758

PATIENT
  Sex: Female

DRUGS (5)
  1. ENOXAPARIN [Concomitant]
     Active Substance: ENOXAPARIN
     Indication: PRODUCT USED FOR UNKNOWN INDICATION
     Dosage: 60 G (PREFILLED SYRINGE), QD
     Route: 058
     Dates: start: 20190227, end: 201903
  2. PANTOPRAZOLE [Concomitant]
     Active Substance: PANTOPRAZOLE
     Indication: PROPHYLAXIS
     Dosage: 20 G, QD
     Route: 048
     Dates: start: 201712
  3. FULVESTRANT. [Suspect]
     Active Substance: FULVESTRANT
     Indication: BREAST CANCER METASTATIC
     Dosage: 250 MG, BID (Q28; EVERY 4 WEEKS)
     Route: 030
     Dates: start: 20190213
  4. KISQALI [Suspect]
     Active Substance: RIBOCICLIB
     Indication: BREAST CANCER METASTATIC
     Dosage: 600 MG, QD, 21 DAYS INTAKE, THEN 7 DAYS PAUSE
     Route: 048
     Dates: start: 20190214, end: 20190301
  5. PREDNISOLONE. [Concomitant]
     Active Substance: PREDNISOLONE
     Indication: RHEUMATIC DISORDER
     Dosage: 9 G, QD
     Route: 065
     Dates: start: 201712

REACTIONS (8)
  - Haematocrit decreased [Unknown]
  - Pyrexia [Recovered/Resolved]
  - Diarrhoea [Recovered/Resolved]
  - Neutrophil count decreased [Unknown]
  - Abdominal pain upper [Recovered/Resolved]
  - Lymphocyte count decreased [Unknown]
  - Epigastric discomfort [Recovered/Resolved]
  - Basophil count decreased [Unknown]

NARRATIVE: CASE EVENT DATE: 20190224
